FAERS Safety Report 7719830-3 (Version None)
Quarter: 2011Q3

REPORT INFORMATION
  Report Type: 
  Country: None (occurrence: None)
  Receive Date: 20110831
  Receipt Date: 20110818
  Transmission Date: 20111222
  Serious: No
  Sender: FDA-Public Use
  Company Number: US-BIOGENIDEC-2011BI031486

PATIENT
  Sex: Female

DRUGS (2)
  1. REBIF [Concomitant]
     Dates: start: 20101201
  2. TYSABRI [Suspect]
     Indication: MULTIPLE SCLEROSIS
     Route: 042
     Dates: start: 20100903, end: 20110226

REACTIONS (1)
  - ADVERSE REACTION [None]
